FAERS Safety Report 6956081-4 (Version None)
Quarter: 2010Q3

REPORT INFORMATION
  Report Type: 
  Country: None (occurrence: None)
  Receive Date: 20100830
  Receipt Date: 20090923
  Transmission Date: 20110219
  Serious: No
  Sender: FDA-Public Use
  Company Number: US-AMGEN-KDL366048

PATIENT
  Sex: Female

DRUGS (12)
  1. NEUPOGEN [Suspect]
     Indication: PRODUCT USED FOR UNKNOWN INDICATION
     Dates: start: 20090923
  2. HUMIRA [Concomitant]
  3. PREVACID [Concomitant]
  4. ZANTAC [Concomitant]
  5. VICOPROFEN (KNOLL LABS) [Concomitant]
  6. OXYCONTIN [Concomitant]
  7. FLEXERIL [Concomitant]
  8. PEGINTERFERON ALFA-2A [Concomitant]
  9. RIBAVIRIN [Concomitant]
  10. TRAZODONE HCL [Concomitant]
  11. XANAX [Concomitant]
  12. EFFEXOR [Concomitant]

REACTIONS (1)
  - INJECTION SITE PAIN [None]
